FAERS Safety Report 21796112 (Version 1)
Quarter: 2022Q4

REPORT INFORMATION
  Report Type: Spontaneous
  Country: US (occurrence: None)
  Receive Date: 20221228
  Receipt Date: 20221228
  Transmission Date: 20230113
  Serious: Yes (Hospitalization)
  Sender: FDA-Public Use
  Company Number: None

PATIENT
  Age: 18 Year
  Sex: Male

DRUGS (10)
  1. PULMOZYME [Suspect]
     Active Substance: DORNASE ALFA
     Indication: Cystic fibrosis
     Dosage: 2.5MG/2.5ML??INHALE 2.5 ML (2.5 MG) VIA NEBULIZER ONCE DAILY.? ?
     Route: 055
     Dates: start: 20151014
  2. ATROVENT HFA AER [Concomitant]
  3. CREON CAP EC [Concomitant]
  4. CYPROHEPTAD TAB [Concomitant]
  5. NOVOLOG INJ FLEXPEN [Concomitant]
  6. OMEPRAZOLE SODIUM [Concomitant]
     Active Substance: OMEPRAZOLE SODIUM
  7. PERTZYE CAP [Concomitant]
  8. PREDNISOLONE SUS OP [Concomitant]
  9. SODIUM CHLOR NEB [Concomitant]
  10. TRIKAFTA [Concomitant]
     Active Substance: ELEXACAFTOR\IVACAFTOR\TEZACAFTOR

REACTIONS (1)
  - Hospitalisation [None]

NARRATIVE: CASE EVENT DATE: 20221201
